FAERS Safety Report 8087803-X (Version None)
Quarter: 2012Q1

REPORT INFORMATION
  Report Type: 
  Country: None (occurrence: None)
  Receive Date: 20120128
  Receipt Date: 20110603
  Transmission Date: 20120608
  Serious: Yes (Hospitalization)
  Sender: FDA-Public Use
  Company Number: US-ABBOTT-11P-163-0730500-00

PATIENT
  Sex: Male
  Weight: 82.628 kg

DRUGS (5)
  1. HUMIRA [Suspect]
     Route: 058
     Dates: start: 20110501
  2. HUMIRA [Suspect]
     Route: 058
     Dates: start: 20110405, end: 20110405
  3. HUMIRA [Suspect]
     Route: 058
     Dates: start: 20110419, end: 20110501
  4. HUMIRA [Suspect]
     Indication: CROHN'S DISEASE
     Route: 058
     Dates: start: 20110322, end: 20110322
  5. PREDNISONE TAB [Concomitant]
     Indication: CROHN'S DISEASE
     Dates: end: 20110501

REACTIONS (3)
  - PYREXIA [None]
  - OROPHARYNGEAL PAIN [None]
  - APPENDICITIS [None]
